FAERS Safety Report 14605994 (Version 2)
Quarter: 2018Q1

REPORT INFORMATION
  Report Type: Spontaneous
  Country: FR (occurrence: FR)
  Receive Date: 20180307
  Receipt Date: 20180321
  Transmission Date: 20180509
  Serious: Yes (Hospitalization, Other)
  Sender: FDA-Public Use
  Company Number: FR-ROCHE-2080117

PATIENT
  Age: 63 Year
  Sex: Male

DRUGS (4)
  1. MYCOPHENOLATE MOFETIL. [Suspect]
     Active Substance: MYCOPHENOLATE MOFETIL
     Indication: LUNG TRANSPLANT
     Route: 065
  2. MYCOPHENOLATE MOFETIL. [Suspect]
     Active Substance: MYCOPHENOLATE MOFETIL
     Indication: IMMUNOSUPPRESSANT DRUG THERAPY
     Route: 065
  3. TACROLIMUS. [Suspect]
     Active Substance: TACROLIMUS
     Indication: IMMUNOSUPPRESSANT DRUG THERAPY
     Dosage: SERUM TROUGH LEVELS BETEWEEN 5 AND 6 MCG/L
     Route: 065
  4. TACROLIMUS. [Suspect]
     Active Substance: TACROLIMUS
     Indication: LUNG TRANSPLANT
     Dosage: SERUM TROUGH LEVELS BETEWEEN 7 AND 8 MCG/L
     Route: 065

REACTIONS (13)
  - Product use in unapproved indication [Unknown]
  - Transplant rejection [Unknown]
  - Fungal infection [Unknown]
  - Ataxia [Unknown]
  - Brain abscess [Unknown]
  - Gait disturbance [Unknown]
  - Headache [Unknown]
  - Transient aphasia [Unknown]
  - Lymphopenia [Unknown]
  - Off label use [Unknown]
  - Cerebellar syndrome [Unknown]
  - Aphasia [Unknown]
  - Dysmetria [Unknown]
